FAERS Safety Report 8011322-X (Version None)
Quarter: 2011Q4

REPORT INFORMATION
  Report Type: 
  Country: None (occurrence: None)
  Receive Date: 20111228
  Receipt Date: 20111226
  Transmission Date: 20120403
  Serious: Yes (Other)
  Sender: FDA-Public Use
  Company Number: JP-PFIZER INC-2011313594

PATIENT
  Age: 23 Year
  Sex: Female
  Weight: 50 kg

DRUGS (3)
  1. ZOLADEX [Suspect]
     Indication: ENDOMETRIOSIS
     Dosage: UNK MG, UNK
     Route: 058
     Dates: start: 20110720, end: 20111109
  2. CABERGOLINE [Suspect]
     Indication: HYPERPROLACTINAEMIA
     Dosage: 1.0 MG, WEEKLY
     Route: 048
     Dates: start: 20110628
  3. ESTRADIOL [Suspect]
     Indication: ENDOMETRIOSIS
     Dosage: 0.18 MG, 1X/DAY
     Route: 062
     Dates: start: 20111005, end: 20111030

REACTIONS (1)
  - UTERINE HAEMORRHAGE [None]
